FAERS Safety Report 21416302 (Version 10)
Quarter: 2022Q4

REPORT INFORMATION
  Report Type: Spontaneous
  Country: US (occurrence: US)
  Receive Date: 20221006
  Receipt Date: 20221201
  Transmission Date: 20230113
  Serious: No
  Sender: FDA-Public Use
  Company Number: US-PFIZER INC-202200725874

PATIENT
  Age: 19 Year
  Sex: Female

DRUGS (1)
  1. GENOTROPIN [Suspect]
     Active Substance: SOMATROPIN
     Dosage: 0.8 MG, DAILY

REACTIONS (8)
  - Poor quality device used [Unknown]
  - Device information output issue [Unknown]
  - Device delivery system issue [Unknown]
  - Device issue [Unknown]
  - Device mechanical issue [Unknown]
  - Product residue present [Unknown]
  - Malaise [Unknown]
  - Feeling abnormal [Recovering/Resolving]

NARRATIVE: CASE EVENT DATE: 20220101
